FAERS Safety Report 6569792-X (Version None)
Quarter: 2010Q1

REPORT INFORMATION
  Report Type: 
  Country: None (occurrence: None)
  Receive Date: 20100202
  Receipt Date: 20100202
  Transmission Date: 20100710
  Serious: Yes (Hospitalization)
  Sender: FDA-Public Use
  Company Number: None

PATIENT
  Age: 77 Year
  Sex: Female
  Weight: 69.8539 kg

DRUGS (2)
  1. OXALIPLATIN [Suspect]
     Indication: COLON CANCER
     Dosage: 150MG EVERY 14 DAYS IV
     Route: 042
     Dates: start: 20100126, end: 20100126
  2. AVASTIN [Suspect]
     Indication: COLON CANCER
     Dosage: 360MG EVERY 14 DAYS IV
     Route: 042
     Dates: start: 20100126, end: 20100126

REACTIONS (3)
  - DYSARTHRIA [None]
  - EYE DISORDER [None]
  - TRANSIENT ISCHAEMIC ATTACK [None]
